FAERS Safety Report 6689262-8 (Version None)
Quarter: 2010Q2

REPORT INFORMATION
  Report Type: 
  Country: None (occurrence: None)
  Receive Date: 20100416
  Receipt Date: 20100401
  Transmission Date: 20101027
  Serious: Yes (Other)
  Sender: FDA-Public Use
  Company Number: IMP_04970_2010

PATIENT
  Age: 41 Year
  Sex: Female

DRUGS (3)
  1. CLARITIN-D [Suspect]
     Indication: HYPERSENSITIVITY
     Dosage: (DF)
     Dates: start: 20091001, end: 20091226
  2. CLARITIN-D [Suspect]
     Indication: RESPIRATORY TRACT CONGESTION
     Dosage: (DF)
     Dates: start: 20091001, end: 20091226
  3. SLEEP AID /01041702/ [Concomitant]

REACTIONS (7)
  - DEHYDRATION [None]
  - EYE PAIN [None]
  - EYES SUNKEN [None]
  - PHOTOPHOBIA [None]
  - VISION BLURRED [None]
  - VISUAL IMPAIRMENT [None]
  - VITREOUS FLOATERS [None]
